FAERS Safety Report 5830353-9 (Version None)
Quarter: 2008Q3

REPORT INFORMATION
  Report Type: 
  Country: None (occurrence: None)
  Receive Date: 20080801
  Receipt Date: 20080730
  Transmission Date: 20090109
  Serious: Yes (Life-Threatening, Hospitalization)
  Sender: FDA-Public Use
  Company Number: JP-EISAI MEDICAL RESEARCH-E2020-03158-SPO-JP

PATIENT
  Age: 85 Year
  Sex: Female

DRUGS (8)
  1. ARICEPT [Suspect]
     Indication: DEMENTIA ALZHEIMER'S TYPE
     Route: 048
     Dates: start: 20080607, end: 20080628
  2. ARICEPT [Suspect]
     Route: 048
     Dates: start: 20080629, end: 20080701
  3. FAMOTIDINE [Concomitant]
     Indication: GASTRIC ULCER
     Route: 048
     Dates: end: 20080725
  4. ALFAROL [Concomitant]
     Indication: HYPERPARATHYROIDISM SECONDARY
     Route: 048
     Dates: end: 20080725
  5. PLAVIX [Concomitant]
     Indication: CEREBRAL INFARCTION
     Route: 048
  6. RENAGEL [Concomitant]
     Indication: BLOOD PHOSPHORUS INCREASED
     Route: 048
     Dates: end: 20080725
  7. PROMAC [Concomitant]
     Indication: GASTRIC ULCER
     Route: 048
     Dates: end: 20080725
  8. AMIYU [Concomitant]
     Indication: RENAL FAILURE
     Route: 048
     Dates: end: 20080725

REACTIONS (1)
  - ALTERED STATE OF CONSCIOUSNESS [None]
